FAERS Safety Report 10069988 (Version 1)
Quarter: 2014Q2

REPORT INFORMATION
  Report Type: Spontaneous
  Country: AR (occurrence: None)
  Receive Date: 20140408
  Receipt Date: 20140408
  Transmission Date: 20141212
  Serious: Yes (Other)
  Sender: FDA-Public Use
  Company Number: 2014HINLIT0308

PATIENT
  Age: 45 Year
  Sex: Male

DRUGS (5)
  1. TENOFOVIR (TENOFOVIR) UNKNOWN [Suspect]
     Indication: HIV INFECTION
  2. EMTRICITABINE (EMTRICITABINE) UNKNOWN [Suspect]
     Indication: HIV INFECTION
  3. ATAZANAVIR + RITONAVIR (ATAZANAVIR, RITONAVIR) UNKNOWN [Suspect]
     Indication: HIV INFECTION
  4. MIGRAL (ERGOTAMINE, DIPYRONE, CAFFEINE) TABLET [Suspect]
     Indication: PRODUCT USED FOR UNKNOWN INDICATION
     Dosage: 1MG, 500MG/100MG
  5. MIGRAL (ERGOTAMINE, DIPYRONE, CAFFEINE) TABLET [Suspect]
     Indication: SELF-MEDICATION
     Dosage: 1MG, 500MG/100MG

REACTIONS (13)
  - Ergot poisoning [None]
  - Drug interaction [None]
  - Migraine [None]
  - Somnolence [None]
  - Hyperhidrosis [None]
  - Pyrexia [None]
  - Rash [None]
  - Hypotension [None]
  - Cyanosis [None]
  - Peripheral pulse decreased [None]
  - Dehydration [None]
  - Arterial spasm [None]
  - Arterial stenosis [None]
